FAERS Safety Report 8594120-8 (Version None)
Quarter: 2012Q3

REPORT INFORMATION
  Report Type: 
  Country: None (occurrence: None)
  Receive Date: 20120814
  Receipt Date: 20120808
  Transmission Date: 20120928
  Serious: Yes (Hospitalization, Other)
  Sender: FDA-Public Use
  Company Number: JP-MERCK-1208JPN004858

PATIENT

DRUGS (15)
  1. REBETOL [Suspect]
     Dosage: 200 MG, QD
     Route: 048
     Dates: start: 20120502
  2. RABEPRAZOLE SODIUM [Concomitant]
     Dosage: 10 MG, QD
     Route: 048
  3. AMARYL [Concomitant]
     Dosage: 3 MG, QD
     Dates: start: 20120416, end: 20120517
  4. REBETOL [Suspect]
     Indication: HEPATITIS C
     Dosage: 800 MG, QD
     Route: 048
     Dates: end: 20120426
  5. TELAVIC [Suspect]
     Indication: HEPATITIS C
     Dosage: 2250 MG, QD
     Route: 048
     Dates: start: 20120412, end: 20120524
  6. PEG-INTRON [Suspect]
     Dosage: 1.25 MICROGRAM PER KILOGRAM, QW
     Route: 058
     Dates: start: 20120510, end: 20120524
  7. AMLODIPINE BESYLATE [Concomitant]
     Dosage: 5 MG, QD
     Route: 048
     Dates: end: 20120531
  8. AMOBAN [Concomitant]
     Dosage: 7.5 MG, QD
     Dates: end: 20120531
  9. TELAVIC [Suspect]
     Dosage: 1500 MG, QD
     Route: 048
     Dates: start: 20120525, end: 20120530
  10. LOXONIN [Concomitant]
     Indication: PROPHYLAXIS
     Dosage: 120 MG, QD
     Route: 048
     Dates: start: 20120419, end: 20120531
  11. PEG-INTRON [Suspect]
     Indication: HEPATITIS C
     Dosage: 1.5 MICROGRAM PER KILOGRAM, QW
     Route: 058
     Dates: start: 20120412
  12. REBETOL [Suspect]
     Dosage: 600 MG, QD
     Route: 048
     Dates: start: 20120427
  13. URSO 250 [Concomitant]
     Indication: HEPATITIS C
     Dosage: 600 MG, QD
     Route: 048
  14. REBETOL [Suspect]
     Dosage: 100 MG, QD
     Route: 048
     Dates: start: 20120510, end: 20120530
  15. JANUVIA [Concomitant]
     Dosage: 50 MG, QD
     Route: 048
     Dates: end: 20120531

REACTIONS (3)
  - DECREASED APPETITE [None]
  - ANAEMIA [None]
  - RENAL DISORDER [None]
